FAERS Safety Report 19873869 (Version 1)
Quarter: 2021Q3

REPORT INFORMATION
  Report Type: Spontaneous
  Country: US (occurrence: US)
  Receive Date: 20210922
  Receipt Date: 20210922
  Transmission Date: 20211014
  Serious: No
  Sender: FDA-Public Use
  Company Number: US-CELGENEUS-USA-20210902739

PATIENT
  Sex: Female

DRUGS (3)
  1. POMALYST [Suspect]
     Active Substance: POMALIDOMIDE
     Indication: PLASMA CELL MYELOMA
     Dosage: 2 MILLIGRAM
     Route: 048
     Dates: start: 202108
  2. DEXAMETHASONE. [Concomitant]
     Active Substance: DEXAMETHASONE
     Indication: PRODUCT USED FOR UNKNOWN INDICATION
     Route: 065
  3. KYPROLIS [Concomitant]
     Active Substance: CARFILZOMIB
     Indication: PRODUCT USED FOR UNKNOWN INDICATION
     Route: 065

REACTIONS (11)
  - Tremor [Unknown]
  - Muscle fatigue [Unknown]
  - Diarrhoea [Unknown]
  - Fatigue [Unknown]
  - Lethargy [Unknown]
  - Dizziness [Unknown]
  - Rash [Recovering/Resolving]
  - Visual impairment [Unknown]
  - Anxiety [Unknown]
  - Dyspnoea [Unknown]
  - Insomnia [Unknown]

NARRATIVE: CASE EVENT DATE: 2021
